FAERS Safety Report 16140920 (Version 2)
Quarter: 2019Q3

REPORT INFORMATION
  Report Type: Spontaneous
  Country: US (occurrence: US)
  Receive Date: 20190401
  Receipt Date: 20190925
  Transmission Date: 20191004
  Serious: Yes (Hospitalization, Other)
  Sender: FDA-Public Use
  Company Number: US-INCYTE CORPORATION-2019IN002917

PATIENT

DRUGS (2)
  1. JAKAFI [Suspect]
     Active Substance: RUXOLITINIB
     Dosage: 10 MG QAM, 20 MG QPM
     Route: 048
  2. JAKAFI [Suspect]
     Active Substance: RUXOLITINIB
     Indication: ILL-DEFINED DISORDER
     Dosage: 10 MG, BID
     Route: 048

REACTIONS (6)
  - Epistaxis [Unknown]
  - Off label use [Unknown]
  - Headache [Unknown]
  - Product taste abnormal [Unknown]
  - Deafness [Unknown]
  - Visual impairment [Unknown]
